FAERS Safety Report 6258360-5 (Version None)
Quarter: 2009Q3

REPORT INFORMATION
  Report Type: 
  Country: None (occurrence: None)
  Receive Date: 20090707
  Receipt Date: 20090625
  Transmission Date: 20100115
  Serious: Yes (Other)
  Sender: FDA-Public Use
  Company Number: ES-ELI_LILLY_AND_COMPANY-ES200906006588

PATIENT
  Sex: Male

DRUGS (1)
  1. PROZAC [Suspect]
     Dosage: 20 MG, UNK
     Route: 048
     Dates: start: 20060101

REACTIONS (4)
  - BLISTER [None]
  - ECZEMA [None]
  - PRURITUS [None]
  - SKIN EXFOLIATION [None]
